FAERS Safety Report 6494975-7 (Version None)
Quarter: 2009Q4

REPORT INFORMATION
  Report Type: 
  Country: None (occurrence: None)
  Receive Date: 20091214
  Receipt Date: 20090415
  Transmission Date: 20100525
  Serious: No
  Sender: FDA-Public Use
  Company Number: US-BRISTOL-MYERS SQUIBB COMPANY-14588925

PATIENT
  Age: 86 Year
  Sex: Male

DRUGS (6)
  1. ABILIFY [Suspect]
     Dosage: TAKEN 2 DOSES
  2. FLOMAX [Concomitant]
  3. ARICEPT [Concomitant]
  4. ACTOS [Concomitant]
  5. NAMENDA [Concomitant]
  6. ALPRAZOLAM [Concomitant]

REACTIONS (1)
  - MEDICATION ERROR [None]
